FAERS Safety Report 8058771-1 (Version None)
Quarter: 2012Q1

REPORT INFORMATION
  Report Type: 
  Country: None (occurrence: None)
  Receive Date: 20120120
  Receipt Date: 20120118
  Transmission Date: 20120608
  Serious: No
  Sender: FDA-Public Use
  Company Number: US-BAYER-2012-006221

PATIENT
  Sex: Male

DRUGS (3)
  1. METFORMIN HCL [Concomitant]
  2. ULTRAVIST 150 [Suspect]
     Indication: COMPUTERISED TOMOGRAM
     Dosage: UNK
     Route: 042
  3. CONTRAST MEDIA [Suspect]
     Route: 048

REACTIONS (2)
  - URTICARIA [None]
  - PRURITUS [None]
